FAERS Safety Report 17025414 (Version 2)
Quarter: 2019Q4

REPORT INFORMATION
  Report Type: Spontaneous
  Country: CA (occurrence: CA)
  Receive Date: 20191113
  Receipt Date: 20191115
  Transmission Date: 20200122
  Serious: Yes (Other)
  Sender: FDA-Public Use
  Company Number: CA-BAYER-2019-199860

PATIENT
  Age: 40 Year
  Sex: Male
  Weight: 104 kg

DRUGS (1)
  1. KYLEENA [Suspect]
     Active Substance: LEVONORGESTREL
     Dosage: 17.5 MCG/24HR, CONT
     Route: 015

REACTIONS (3)
  - Haemorrhage [Recovered/Resolved]
  - Complication associated with device [Recovered/Resolved]
  - Pain [Recovered/Resolved]
